FAERS Safety Report 5103333-9 (Version None)
Quarter: 2006Q3

REPORT INFORMATION
  Report Type: 
  Country: None (occurrence: None)
  Receive Date: 20060913
  Receipt Date: 20060905
  Transmission Date: 20061208
  Serious: Yes (Other)
  Sender: FDA-Public Use
  Company Number: US-JNJFOC-20060603686

PATIENT
  Sex: Female
  Weight: 53.52 kg

DRUGS (5)
  1. REMICADE [Suspect]
     Route: 042
  2. REMICADE [Suspect]
     Indication: RHEUMATOID ARTHRITIS
     Route: 042
  3. ADVAIR DISKUS 100/50 [Concomitant]
     Indication: ASTHMA
  4. TIAZAC [Concomitant]
     Indication: BLOOD PRESSURE
  5. LANOXIN [Concomitant]
     Indication: CARDIAC DISORDER

REACTIONS (2)
  - DIVERTICULUM [None]
  - INTESTINAL OBSTRUCTION [None]
